FAERS Safety Report 11054718 (Version 1)
Quarter: 2015Q2

REPORT INFORMATION
  Report Type: Spontaneous
  Country: US (occurrence: US)
  Receive Date: 20150422
  Receipt Date: 20150422
  Transmission Date: 20150821
  Serious: Yes (Other)
  Sender: FDA-Public Use
  Company Number: US-JNJFOC-A123664

PATIENT
  Age: 24 Year
  Sex: Female

DRUGS (7)
  1. ZANTAC [Suspect]
     Active Substance: RANITIDINE HYDROCHLORIDE
     Indication: MULTIPLE ALLERGIES
     Dosage: FREQUENCY TEXT: TID DAILY DOSE QTY: 450 MG
     Route: 048
     Dates: start: 20010724, end: 200108
  2. CETIRIZINE [Interacting]
     Active Substance: CETIRIZINE HYDROCHLORIDE
     Indication: MULTIPLE ALLERGIES
     Route: 065
     Dates: start: 20010724, end: 20010809
  3. BENADRYL [Interacting]
     Active Substance: DIPHENHYDRAMINE HYDROCHLORIDE
     Indication: MULTIPLE ALLERGIES
     Route: 065
     Dates: start: 20010724, end: 20010809
  4. CETIRIZINE [Interacting]
     Active Substance: CETIRIZINE HYDROCHLORIDE
     Route: 065
  5. ATARAX [Interacting]
     Active Substance: HYDROXYZINE\HYDROXYZINE HYDROCHLORIDE
     Indication: MULTIPLE ALLERGIES
     Dosage: DAILY DOSE QTY: 25 MG
     Route: 065
     Dates: start: 20010724, end: 20010809
  6. BENADRYL [Interacting]
     Active Substance: DIPHENHYDRAMINE HYDROCHLORIDE
     Route: 065
  7. CLARITIN [Interacting]
     Active Substance: LORATADINE
     Indication: MULTIPLE ALLERGIES
     Route: 065
     Dates: start: 20010724, end: 200108

REACTIONS (5)
  - Loss of consciousness [Recovering/Resolving]
  - Drug interaction [Recovering/Resolving]
  - Personality disorder [Recovering/Resolving]
  - Urticaria [Recovering/Resolving]
  - Blood pressure increased [Recovering/Resolving]

NARRATIVE: CASE EVENT DATE: 2001
